FAERS Safety Report 7825225 (Version 3)
Quarter: 2013Q2

REPORT INFORMATION
  Report Type: Spontaneous
  Country: US (occurrence: US)
  Receive Date: 20110224
  Receipt Date: 20130611
  Transmission Date: 20140414
  Serious: Yes (Hospitalization, Other)
  Sender: FDA-Public Use
  Company Number: US-ROCHE-734076

PATIENT
  Age: 20 Year
  Sex: Female
  Weight: 51.7 kg

DRUGS (3)
  1. ACCUTANE [Suspect]
     Indication: ACNE
     Route: 065
     Dates: start: 19920101, end: 19920225
  2. ACCUTANE [Suspect]
     Route: 065
     Dates: start: 200202, end: 200204
  3. MOTRIN [Concomitant]

REACTIONS (10)
  - Crohn^s disease [Unknown]
  - Colitis ulcerative [Unknown]
  - Gastrointestinal injury [Unknown]
  - Depression [Unknown]
  - Suicidal ideation [Unknown]
  - Inflammatory bowel disease [Unknown]
  - Intestinal haemorrhage [Unknown]
  - Anal fistula [Unknown]
  - Intestinal obstruction [Unknown]
  - Irritable bowel syndrome [Unknown]
